FAERS Safety Report 25616581 (Version 1)
Quarter: 2025Q3

REPORT INFORMATION
  Report Type: Spontaneous
  Country: US (occurrence: US)
  Receive Date: 20250729
  Receipt Date: 20250729
  Transmission Date: 20251021
  Serious: Yes (Hospitalization, Other)
  Sender: TAKEDA
  Company Number: US-TAKEDA-2025TUS066539

PATIENT
  Age: 56 Year
  Sex: Female
  Weight: 48.073 kg

DRUGS (16)
  1. ENTYVIO [Suspect]
     Active Substance: VEDOLIZUMAB
     Indication: Crohn^s disease
  2. ENTYVIO [Suspect]
     Active Substance: VEDOLIZUMAB
  3. ENTYVIO [Suspect]
     Active Substance: VEDOLIZUMAB
     Dosage: 300 MILLIGRAM, Q4WEEKS
  4. ENTYVIO [Suspect]
     Active Substance: VEDOLIZUMAB
     Dosage: 300 MILLIGRAM, Q2WEEKS
  5. PREDNISONE [Suspect]
     Active Substance: PREDNISONE
     Indication: Skin swelling
  6. GATTEX [Concomitant]
     Active Substance: TEDUGLUTIDE\WATER
     Dosage: 5 MILLIGRAM, QD
  7. MIDODRINE HYDROCHLORIDE [Concomitant]
     Active Substance: MIDODRINE HYDROCHLORIDE
  8. KLOR-CON M20 [Concomitant]
     Active Substance: POTASSIUM CHLORIDE
     Dosage: UNK UNK, QD
  9. MAGNESIUM [Concomitant]
     Active Substance: MAGNESIUM
     Dosage: 400 MILLIGRAM, QD
  10. LOPERAMIDE HYDROCHLORIDE [Concomitant]
     Active Substance: LOPERAMIDE HYDROCHLORIDE
  11. CALCIUM CARBONATE [Concomitant]
     Active Substance: CALCIUM CARBONATE
  12. LACTOBACILLUS ACIDOPHILUS [Concomitant]
     Active Substance: LACTOBACILLUS ACIDOPHILUS
  13. CRANBERRY [Concomitant]
     Active Substance: CRANBERRY
  14. CHOLECALCIFEROL [Concomitant]
     Active Substance: CHOLECALCIFEROL
  15. ONDANSETRON [Concomitant]
     Active Substance: ONDANSETRON
  16. ATROPINE [Concomitant]
     Active Substance: ATROPINE

REACTIONS (18)
  - Nephrolithiasis [Unknown]
  - Deep vein thrombosis postoperative [Unknown]
  - Portal vein thrombosis [Unknown]
  - Mesenteric vein thrombosis [Unknown]
  - Blood creatinine abnormal [Unknown]
  - Abnormal loss of weight [Unknown]
  - Iron deficiency anaemia [Unknown]
  - Drug level decreased [Unknown]
  - Skin swelling [Unknown]
  - Retching [Unknown]
  - Diarrhoea [Unknown]
  - Hepatic steatosis [Unknown]
  - Product dose omission issue [Unknown]
  - Dehydration [Unknown]
  - Anal inflammation [Unknown]
  - Dyspnoea [Unknown]
  - Abdominal pain [Unknown]
  - Nausea [Unknown]

NARRATIVE: CASE EVENT DATE: 20250609
